FAERS Safety Report 21966513 (Version 2)
Quarter: 2023Q1

REPORT INFORMATION
  Report Type: Spontaneous
  Country: PL (occurrence: PL)
  Receive Date: 20230208
  Receipt Date: 20230316
  Transmission Date: 20230417
  Serious: Yes (Hospitalization, Other)
  Sender: FDA-Public Use
  Company Number: PL-MYLANLABS-2022M1143855

PATIENT
  Age: 59 Year
  Sex: Male

DRUGS (16)
  1. MIRTAZAPINE [Suspect]
     Active Substance: MIRTAZAPINE
     Indication: Depression
     Dosage: 45 MILLIGRAM, ONCE A DAY
     Route: 065
     Dates: start: 2020
  2. MIRTAZAPINE [Suspect]
     Active Substance: MIRTAZAPINE
     Indication: Psychotic symptom
     Dosage: 30 MILLIGRAM, ONCE A DAY
     Route: 065
     Dates: start: 2020
  3. OLANZAPINE [Suspect]
     Active Substance: OLANZAPINE
     Indication: Depression
     Dosage: 20 MILLIGRAM, ONCE A DAY
     Route: 065
     Dates: start: 2020
  4. OLANZAPINE [Suspect]
     Active Substance: OLANZAPINE
     Indication: Psychotic symptom
  5. VENLAFAXINE [Suspect]
     Active Substance: VENLAFAXINE HYDROCHLORIDE
     Indication: Depression
     Dosage: 150 MILLIGRAM, ONCE A DAY
     Route: 065
     Dates: start: 2020
  6. VENLAFAXINE [Suspect]
     Active Substance: VENLAFAXINE HYDROCHLORIDE
     Indication: Psychotic symptom
  7. RISPERIDONE [Suspect]
     Active Substance: RISPERIDONE
     Indication: Delusion
     Dosage: 6 MILLIGRAM, ONCE A DAY
     Route: 048
     Dates: start: 2020
  8. RISPERIDONE [Suspect]
     Active Substance: RISPERIDONE
     Indication: Depression
     Dosage: 4 MILLIGRAM, ONCE A DAY
     Route: 048
     Dates: start: 2020
  9. RISPERIDONE [Suspect]
     Active Substance: RISPERIDONE
     Indication: Psychotic symptom
     Dosage: 2 MILLIGRAM, ONCE A DAY
     Route: 048
     Dates: start: 2020
  10. RISPERIDONE [Concomitant]
     Active Substance: RISPERIDONE
     Indication: Psychotic symptom
     Dosage: 6 MILLIGRAM, ONCE A DAY
     Route: 065
     Dates: start: 2020
  11. RISPERIDONE [Concomitant]
     Active Substance: RISPERIDONE
     Indication: Depression
     Dosage: 4 MILLIGRAM, ONCE A DAY
     Route: 065
     Dates: start: 2020
  12. RISPERIDONE [Concomitant]
     Active Substance: RISPERIDONE
     Dosage: 6 MILLIGRAM, ONCE A DAY(ADDED GRADUALLY AT A DOSE OF UP TO )
     Route: 065
     Dates: start: 2020
  13. THYROXINE [Concomitant]
     Active Substance: LEVOTHYROXINE
     Indication: Hypothyroidism
     Dosage: 25 MICROGRAM, ONCE A DAY
     Route: 065
  14. THYROXINE [Concomitant]
     Active Substance: LEVOTHYROXINE
     Indication: Autoimmune thyroiditis
  15. VENLAFAXINE [Concomitant]
     Active Substance: VENLAFAXINE HYDROCHLORIDE
     Indication: Psychotic symptom
     Dosage: 150 MILLIGRAM
     Route: 065
     Dates: start: 2020
  16. VENLAFAXINE [Concomitant]
     Active Substance: VENLAFAXINE HYDROCHLORIDE
     Indication: Depression

REACTIONS (8)
  - Cerebral ischaemia [Unknown]
  - Drug ineffective [Unknown]
  - Anxiety [Unknown]
  - Ischaemia [Unknown]
  - Memory impairment [Unknown]
  - Psychomotor retardation [Recovered/Resolved]
  - Sedation [Recovered/Resolved]
  - Therapeutic product effect incomplete [Unknown]

NARRATIVE: CASE EVENT DATE: 20200101
